FAERS Safety Report 9431013 (Version 1)
Quarter: 2013Q3

REPORT INFORMATION
  Report Type: Spontaneous
  Country: ES (occurrence: ES)
  Receive Date: 20130730
  Receipt Date: 20130730
  Transmission Date: 20140515
  Serious: Yes (Disabling)
  Sender: FDA-Public Use
  Company Number: ES-PFIZER INC-2013216802

PATIENT
  Age: 16 Year
  Sex: Male

DRUGS (3)
  1. CITARABINA [Suspect]
     Indication: ACUTE LYMPHOCYTIC LEUKAEMIA
     Dosage: 30 MG, UNK
     Route: 037
     Dates: start: 201209, end: 20130417
  2. METHOTREXATE [Suspect]
     Indication: ACUTE LYMPHOCYTIC LEUKAEMIA
     Dosage: 12 MG, UNK
     Route: 037
     Dates: start: 201209, end: 20130417
  3. HYDROCORTISONE [Concomitant]
     Dosage: 20 MG, UNK

REACTIONS (1)
  - Radiculitis [Not Recovered/Not Resolved]
